FAERS Safety Report 8185487-3 (Version None)
Quarter: 2012Q1

REPORT INFORMATION
  Report Type: 
  Country: None (occurrence: None)
  Receive Date: 20120305
  Receipt Date: 20120222
  Transmission Date: 20120608
  Serious: Yes (Hospitalization)
  Sender: FDA-Public Use
  Company Number: FR-FRI-1000028301

PATIENT
  Sex: Female

DRUGS (6)
  1. PRAZEPAM [Concomitant]
     Dosage: OCCASIONALLY
  2. ESCITALOPRAM [Suspect]
     Dosage: 20 MG
     Route: 048
     Dates: start: 20090101
  3. ESCITALOPRAM [Suspect]
     Indication: DEPRESSION
     Dosage: 10 MG
     Route: 048
     Dates: start: 20071231
  4. ESCITALOPRAM [Suspect]
     Dosage: 5 MG
     Route: 048
  5. LEXOMIL [Concomitant]
     Indication: DEPRESSION
     Dosage: 6 MG
     Route: 048
  6. MAGNESIUM [Concomitant]
     Dosage: OCCASIONALLY

REACTIONS (4)
  - CARDIAC ARREST [None]
  - PARAESTHESIA [None]
  - PRESYNCOPE [None]
  - ELECTROCARDIOGRAM REPOLARISATION ABNORMALITY [None]
